FAERS Safety Report 17228605 (Version 1)
Quarter: 2020Q1

REPORT INFORMATION
  Report Type: Other
  Country: FR (occurrence: FR)
  Receive Date: 20200103
  Receipt Date: 20200103
  Transmission Date: 20200409
  Serious: Yes (Life-Threatening, Hospitalization, Other)
  Sender: FDA-Public Use
  Company Number: FR-APOTEX-2019AP026866

PATIENT
  Age: 21 Year
  Sex: Female

DRUGS (4)
  1. TERCIAN                            /00759301/ [Suspect]
     Active Substance: CYAMEMAZINE
     Indication: POISONING DELIBERATE
     Dosage: 100 MG, QD
     Route: 048
     Dates: start: 20191130
  2. LORMETAZEPAM [Suspect]
     Active Substance: LORMETAZEPAM
     Indication: POISONING DELIBERATE
     Dosage: 18 MG, QD
     Route: 048
     Dates: start: 20191130
  3. PAROXETINE. [Suspect]
     Active Substance: PAROXETINE
     Indication: POISONING DELIBERATE
     Dosage: 200 MG, QD
     Route: 048
     Dates: start: 20191130
  4. VALIUM [Suspect]
     Active Substance: DIAZEPAM
     Indication: POISONING DELIBERATE
     Dosage: 210 MG, QD
     Route: 048
     Dates: start: 20191130

REACTIONS (2)
  - Poisoning deliberate [Recovered/Resolved]
  - Somnolence [Recovered/Resolved]

NARRATIVE: CASE EVENT DATE: 20191130
